FAERS Safety Report 6767038-0 (Version None)
Quarter: 2010Q2

REPORT INFORMATION
  Report Type: 
  Country: None (occurrence: None)
  Receive Date: 20100611
  Receipt Date: 20100603
  Transmission Date: 20101027
  Serious: Yes (Other)
  Sender: FDA-Public Use
  Company Number: US-GENENTECH-302561

PATIENT
  Sex: Male

DRUGS (18)
  1. RANIBIZUMAB [Suspect]
     Indication: MACULAR OEDEMA
     Dosage: UNK
     Dates: start: 20080409
  2. LASER TREATMENT [Suspect]
     Indication: MACULAR OEDEMA
     Dosage: UNK
     Route: 031
     Dates: start: 20100111
  3. DIPYRIDAMOL [Concomitant]
     Indication: PROPHYLAXIS
     Dosage: UNK
     Dates: start: 19840101
  4. FUROSEMIDE [Concomitant]
     Indication: FLUID RETENTION
     Dosage: 80 MG, UNK
     Dates: start: 20061101, end: 20100522
  5. FUROSEMIDE [Concomitant]
     Dosage: 40 MG, UNK
     Dates: start: 20100522
  6. GABAPENTIN [Concomitant]
     Indication: NEUROPATHY PERIPHERAL
     Dosage: UNK
     Dates: start: 20070201
  7. TRICOR [Concomitant]
     Indication: BLOOD CHOLESTEROL INCREASED
     Dosage: UNK
     Dates: start: 20081216
  8. NOVOLIN [Concomitant]
     Indication: DIABETES MELLITUS
     Dosage: UNK
     Dates: start: 20070201
  9. NOVOLIN R [Concomitant]
     Indication: DIABETES MELLITUS
     Dosage: UNK
     Dates: start: 20040101
  10. METAXALONE [Concomitant]
     Indication: HYPERTENSION
     Dosage: UNK
     Dates: start: 20090528, end: 20100522
  11. GLIPIZIDE [Concomitant]
     Indication: DIABETES MELLITUS
     Dosage: UNK
     Dates: start: 19980101, end: 20100505
  12. LORAFEM [Concomitant]
     Indication: DEPRESSION
     Dosage: UNK
     Dates: start: 20080518, end: 20100505
  13. PRAVACHOL [Concomitant]
     Indication: BLOOD CHOLESTEROL INCREASED
     Dosage: UNK
     Dates: start: 20080528, end: 20100505
  14. SIMVASTIN [Concomitant]
     Indication: BLOOD CHOLESTEROL INCREASED
     Dosage: UNK
     Dates: start: 20090525
  15. PROVENTIL [Concomitant]
     Indication: CHRONIC OBSTRUCTIVE PULMONARY DISEASE
     Dosage: UNK
     Dates: start: 20100505
  16. SYMBICORT [Concomitant]
     Indication: CHRONIC OBSTRUCTIVE PULMONARY DISEASE
     Dosage: UNK
     Dates: start: 20090505
  17. ARTIFICIAL TEARS [Concomitant]
     Indication: BLEPHARITIS
     Dosage: UNK
     Dates: start: 20090203
  18. METOPROLOL TARTRATE [Concomitant]
     Indication: ARRHYTHMIA

REACTIONS (1)
  - RENAL FAILURE CHRONIC [None]
